FAERS Safety Report 10786034 (Version 2)
Quarter: 2015Q1

REPORT INFORMATION
  Report Type: Report from Study
  Country: US (occurrence: US)
  Receive Date: 20150211
  Receipt Date: 20150327
  Transmission Date: 20150721
  Serious: Yes (Other)
  Sender: FDA-Public Use
  Company Number: US-SA-2014SA145016

PATIENT
  Age: 42 Year
  Sex: Female

DRUGS (6)
  1. BIOTIN [Concomitant]
     Active Substance: BIOTIN
     Indication: VITAMIN SUPPLEMENTATION
     Dosage: DOSE: 500 (UNITS UNSPECIFIED)
     Dates: start: 2014
  2. NEURONTIN [Concomitant]
     Active Substance: GABAPENTIN
     Indication: BACK PAIN
     Dates: start: 2010
  3. ESTRADIOL. [Concomitant]
     Active Substance: ESTRADIOL
     Indication: HORMONE REPLACEMENT THERAPY
     Dates: start: 1998
  4. BACLOFEN. [Concomitant]
     Active Substance: BACLOFEN
     Indication: BACK PAIN
     Dates: start: 2008, end: 2015
  5. AUBAGIO [Suspect]
     Active Substance: TERIFLUNOMIDE
     Indication: MULTIPLE SCLEROSIS
     Route: 048
     Dates: start: 20141003, end: 20150305
  6. VITAMIN B12 [Concomitant]
     Active Substance: CYANOCOBALAMIN
     Indication: VITAMIN SUPPLEMENTATION
     Dosage: DOSE: 500 (UNITS UNSPECIFIED)
     Dates: start: 2012

REACTIONS (17)
  - JC virus infection [Unknown]
  - Impaired work ability [Unknown]
  - Visual impairment [Not Recovered/Not Resolved]
  - Vision blurred [Not Recovered/Not Resolved]
  - Dyspepsia [Recovering/Resolving]
  - Diplopia [Not Recovered/Not Resolved]
  - Condition aggravated [Unknown]
  - Headache [Recovering/Resolving]
  - Musculoskeletal pain [Recovering/Resolving]
  - Pain in extremity [Recovering/Resolving]
  - Musculoskeletal stiffness [Not Recovered/Not Resolved]
  - Drug ineffective [Unknown]
  - Visual impairment [Not Recovered/Not Resolved]
  - Balance disorder [Unknown]
  - Multiple sclerosis relapse [Recovering/Resolving]
  - Back pain [Not Recovered/Not Resolved]
  - Hypoaesthesia [Recovering/Resolving]

NARRATIVE: CASE EVENT DATE: 201412
